FAERS Safety Report 10268158 (Version 1)
Quarter: 2014Q2

REPORT INFORMATION
  Report Type: Spontaneous
  Country: US (occurrence: US)
  Receive Date: 20140630
  Receipt Date: 20140630
  Transmission Date: 20141212
  Serious: Yes (Death)
  Sender: FDA-Public Use
  Company Number: US-ACTELION-A-NJ2014-100853

PATIENT
  Age: 2 Year
  Sex: Female

DRUGS (2)
  1. TRACLEER [Suspect]
     Indication: CONGENITAL ANOMALY
     Route: 048
  2. SILDENAFIL [Concomitant]

REACTIONS (1)
  - Death [Fatal]
